FAERS Safety Report 6644559-2 (Version None)
Quarter: 2010Q1

REPORT INFORMATION
  Report Type: 
  Country: None (occurrence: None)
  Receive Date: 20100319
  Receipt Date: 20100319
  Transmission Date: 20100710
  Serious: Yes (Other)
  Sender: FDA-Public Use
  Company Number: None

PATIENT
  Age: 62 Year
  Sex: Male
  Weight: 55 kg

DRUGS (3)
  1. FOSAMAX [Suspect]
     Indication: OSTEOPOROSIS
     Dosage: ALENDRONATE 70 MG WEEKLY 047
     Dates: start: 20071001, end: 20100201
  2. ATENOLOL [Concomitant]
  3. ATENOLOL AND CHLORTHALIDONE [Concomitant]

REACTIONS (6)
  - ORAL PAIN [None]
  - OSTEOLYSIS [None]
  - OSTEONECROSIS [None]
  - PARAESTHESIA [None]
  - PRIMARY SEQUESTRUM [None]
  - TOOTH EXTRACTION [None]
